FAERS Safety Report 19207012 (Version 1)
Quarter: 2021Q2

REPORT INFORMATION
  Report Type: Report from Study
  Country: IN (occurrence: IN)
  Receive Date: 20210503
  Receipt Date: 20210503
  Transmission Date: 20210717
  Serious: Yes (Other)
  Sender: FDA-Public Use
  Company Number: NVSC2020IN349521

PATIENT
  Age: 14 Year
  Sex: Male

DRUGS (2)
  1. TASIGNA [Suspect]
     Active Substance: NILOTINIB
     Dosage: 300 MG MORNING AND 150 MG EVENING
     Route: 065
     Dates: start: 20200210, end: 20210322
  2. TASIGNA [Suspect]
     Active Substance: NILOTINIB
     Indication: CHRONIC MYELOID LEUKAEMIA
     Dosage: 300 MG AND 150 MG ALTERNATE DAY
     Route: 065
     Dates: start: 20200116, end: 20200209

REACTIONS (2)
  - Product use issue [Unknown]
  - Blast cell count increased [Not Recovered/Not Resolved]

NARRATIVE: CASE EVENT DATE: 20200209
